FAERS Safety Report 12397271 (Version 5)
Quarter: 2019Q2

REPORT INFORMATION
  Report Type: Spontaneous
  Country: US (occurrence: US)
  Receive Date: 20160524
  Receipt Date: 20190625
  Transmission Date: 20190711
  Serious: No
  Sender: FDA-Public Use
  Company Number: US-PFIZER INC-2016000513

PATIENT
  Age: 58 Year
  Sex: Male
  Weight: 89 kg

DRUGS (10)
  1. ASPIRIN. [Concomitant]
     Active Substance: ASPIRIN
     Dosage: 81 MG, DAILY
     Route: 048
  2. VENTOLIN HFA [Concomitant]
     Active Substance: ALBUTEROL SULFATE
     Indication: DYSPNOEA
     Dosage: (1TO2 PUFFS Q 4 HRS), AS NEEDED
  3. NOVOLOG [Concomitant]
     Active Substance: INSULIN ASPART
     Indication: DIABETES MELLITUS
     Dosage: 25 IU, 3X/DAY
  4. SIMVASTATIN. [Concomitant]
     Active Substance: SIMVASTATIN
     Dosage: 20 MG, 1X/DAY
  5. LISINOPRIL. [Concomitant]
     Active Substance: LISINOPRIL
     Dosage: 40 MG, DAILY
     Route: 048
  6. LANTUS [Concomitant]
     Active Substance: INSULIN GLARGINE
     Indication: DIABETES MELLITUS
     Dosage: 20 IU, 1X/DAY (EVERY EVENING)
  7. LYRICA [Suspect]
     Active Substance: PREGABALIN
     Dosage: 75 MG, 2X/DAY
     Route: 048
     Dates: start: 2017, end: 201903
  8. NOVOLOG [Concomitant]
     Active Substance: INSULIN ASPART
     Dosage: 25 IU, DAILY
  9. LYRICA [Suspect]
     Active Substance: PREGABALIN
     Indication: MUSCLE SPASMS
     Dosage: 75 MG, 2X/DAY
     Route: 048
     Dates: start: 2015
  10. ZOSTAVAX [Concomitant]
     Active Substance: VARICELLA-ZOSTER VIRUS STRAIN OKA/MERCK LIVE ANTIGEN
     Dosage: UNK [19400 UNT/0.65ML SOLR]
     Route: 030

REACTIONS (7)
  - Osteoarthritis [Unknown]
  - Pain in extremity [Unknown]
  - Off label use [Unknown]
  - Product use in unapproved indication [Unknown]
  - Proctalgia [Unknown]
  - Muscle spasms [Unknown]
  - Feeling abnormal [Unknown]

NARRATIVE: CASE EVENT DATE: 2015
